FAERS Safety Report 18477879 (Version 2)
Quarter: 2020Q4

REPORT INFORMATION
  Report Type: Other
  Country: US (occurrence: US)
  Receive Date: 20201108
  Receipt Date: 20201218
  Transmission Date: 20210114
  Serious: Yes (Hospitalization, Other)
  Sender: FDA-Public Use
  Company Number: US-AMAG PHARMACEUTICALS, INC.-AMAG202003772

PATIENT
  Age: 22 Year
  Sex: Female

DRUGS (1)
  1. MAKENA [Suspect]
     Active Substance: HYDROXYPROGESTERONE CAPROATE
     Indication: PREMATURE DELIVERY
     Dosage: 250 MG/ML, WEEKLY
     Route: 058
     Dates: start: 20200715, end: 20201019

REACTIONS (4)
  - Premature delivery [Recovered/Resolved]
  - Off label use [Unknown]
  - Gestational hypertension [Unknown]
  - Induced labour [Recovered/Resolved]

NARRATIVE: CASE EVENT DATE: 20200715
